FAERS Safety Report 4611190-X (Version None)
Quarter: 2005Q1

REPORT INFORMATION
  Report Type: 
  Country: None (occurrence: None)
  Receive Date: 20050315
  Receipt Date: 20050315
  Transmission Date: 20050727
  Serious: Yes (Death)
  Sender: FDA-Public Use
  Company Number: None

PATIENT
  Sex: Male
  Weight: 86.1834 kg

DRUGS (8)
  1. IRINOTECAN HCL [Suspect]
     Indication: LUNG DISORDER
     Dosage: 104 MG  IV  D 1 + 8
     Route: 042
     Dates: start: 20050214, end: 20050221
  2. CISPLATIN [Suspect]
     Indication: LUNG DISORDER
     Dosage: 41.6  MG D 1 + 8
     Dates: start: 20050214, end: 20050221
  3. ETOPOSIDE [Suspect]
     Dosage: 100 MG BID PO
     Route: 048
     Dates: start: 20050216, end: 20050223
  4. IMODIUM [Concomitant]
  5. PERCOCET [Concomitant]
  6. DECADRON [Concomitant]
  7. CRESTOR [Concomitant]
  8. EFFEXOR [Concomitant]

REACTIONS (6)
  - DIARRHOEA [None]
  - ENTERITIS [None]
  - FEBRILE NEUTROPENIA [None]
  - PNEUMONIA [None]
  - RENAL FAILURE [None]
  - RESPIRATORY FAILURE [None]
